FAERS Safety Report 6348175-1 (Version None)
Quarter: 2009Q3

REPORT INFORMATION
  Report Type: 
  Country: None (occurrence: None)
  Receive Date: 20090908
  Receipt Date: 20090826
  Transmission Date: 20100115
  Serious: Yes (Other)
  Sender: FDA-Public Use
  Company Number: GXKR2008ES10189

PATIENT
  Age: 71 Year
  Sex: Female
  Weight: 58 kg

DRUGS (4)
  1. GABAPENTIN [Suspect]
     Indication: BACK PAIN
     Dosage: 3 DF, QD, ORAL; 1 DF, QD, ORAL
     Route: 048
     Dates: start: 20061201
  2. FELDENE [Concomitant]
  3. TERMALGIN CODEINA (CODEINE PHOSPHATE, PARACETAMOL) [Concomitant]
  4. MYOLASTAN (TETRAZEPAM) [Concomitant]

REACTIONS (3)
  - ABDOMINAL DISTENSION [None]
  - LOW CARDIAC OUTPUT SYNDROME [None]
  - MUSCLE SPASMS [None]
